FAERS Safety Report 4589970-9 (Version None)
Quarter: 2005Q1

REPORT INFORMATION
  Report Type: 
  Country: None (occurrence: None)
  Receive Date: 20050125
  Receipt Date: 20041014
  Transmission Date: 20050727
  Serious: No
  Sender: FDA-Public Use
  Company Number: USA040773434

PATIENT
  Age: 69 Year
  Sex: Female
  Weight: 48 kg

DRUGS (5)
  1. FORTEO [Suspect]
     Indication: OSTEOPOROSIS
     Dosage: 20 UG/L DAY
     Dates: start: 20040713
  2. SYNTHROID [Concomitant]
  3. LIPITOR [Concomitant]
  4. PREVACID [Concomitant]
  5. CALCIUM W/VITAMIN D NOS [Concomitant]

REACTIONS (2)
  - INJECTION SITE HAEMORRHAGE [None]
  - PAROSMIA [None]
